FAERS Safety Report 25145792 (Version 4)
Quarter: 2025Q4

REPORT INFORMATION
  Report Type: Spontaneous
  Country: US (occurrence: US)
  Receive Date: 20250401
  Receipt Date: 20251121
  Transmission Date: 20260117
  Serious: No
  Sender: SANOFI AVENTIS
  Company Number: US-SA-2025SA092362

PATIENT
  Age: 14 Year
  Sex: Female

DRUGS (2)
  1. DUPIXENT [Suspect]
     Active Substance: DUPILUMAB
     Indication: Eczema
     Dosage: 400 MG, 1X
     Route: 058
     Dates: start: 20250115, end: 20250115
  2. DUPIXENT [Suspect]
     Active Substance: DUPILUMAB
     Indication: Dermatitis allergic
     Dosage: 200 MG, QOW
     Route: 058
     Dates: start: 2025

REACTIONS (2)
  - Eye disorder [Unknown]
  - Injection site pain [Unknown]

NARRATIVE: CASE EVENT DATE: 20250101
